FAERS Safety Report 6410976-9 (Version None)
Quarter: 2009Q4

REPORT INFORMATION
  Report Type: 
  Country: None (occurrence: None)
  Receive Date: 20091022
  Receipt Date: 20091014
  Transmission Date: 20100525
  Serious: Yes (Death, Hospitalization)
  Sender: FDA-Public Use
  Company Number: IN-BAXTER-2009BH014732

PATIENT
  Age: 65 Year
  Sex: Female

DRUGS (2)
  1. DIANEAL [Suspect]
     Indication: PERITONEAL DIALYSIS
     Route: 033
     Dates: start: 20090918, end: 20091013
  2. DIANEAL [Suspect]
     Route: 033
     Dates: start: 20090918, end: 20091013

REACTIONS (2)
  - CARDIAC ARREST [None]
  - PERITONITIS [None]
